FAERS Safety Report 7527293-6 (Version None)
Quarter: 2011Q2

REPORT INFORMATION
  Report Type: 
  Country: None (occurrence: None)
  Receive Date: 20110603
  Receipt Date: 20110603
  Transmission Date: 20111010
  Serious: Yes (Other)
  Sender: FDA-Public Use
  Company Number: None

PATIENT
  Age: 18 Year
  Sex: Male
  Weight: 79.3795 kg

DRUGS (1)
  1. SERTRALINE HYDROCHLORIDE [Suspect]
     Indication: DEPRESSION
     Dosage: 150MG ONCE DAILY PO
     Route: 048
     Dates: start: 20110531, end: 20110602

REACTIONS (4)
  - ABNORMAL BEHAVIOUR [None]
  - PRODUCT QUALITY ISSUE [None]
  - AGITATION [None]
  - PRODUCT SUBSTITUTION ISSUE [None]
